FAERS Safety Report 19314173 (Version 1)
Quarter: 2021Q2

REPORT INFORMATION
  Report Type: Spontaneous
  Country: US (occurrence: US)
  Receive Date: 20210527
  Receipt Date: 20210527
  Transmission Date: 20210717
  Serious: No
  Sender: FDA-Public Use
  Company Number: None

PATIENT
  Age: 60 Year
  Sex: Female
  Weight: 63.41 kg

DRUGS (16)
  1. MIRTAZAPINE. [Concomitant]
     Active Substance: MIRTAZAPINE
  2. ELIQUIS [Concomitant]
     Active Substance: APIXABAN
  3. FOLIC ACID. [Concomitant]
     Active Substance: FOLIC ACID
  4. HUMULIN R [Concomitant]
     Active Substance: INSULIN HUMAN
  5. MAGNESIUM [Concomitant]
     Active Substance: MAGNESIUM
  6. METFORMIN [Concomitant]
     Active Substance: METFORMIN HYDROCHLORIDE
  7. METHYLPREDNISOLONE. [Concomitant]
     Active Substance: METHYLPREDNISOLONE
  8. HYDROCHLOROTHIAZIDE. [Concomitant]
     Active Substance: HYDROCHLOROTHIAZIDE
  9. LORAZEPAM. [Concomitant]
     Active Substance: LORAZEPAM
  10. MELATONIN [Concomitant]
     Active Substance: MELATONIN
  11. LAPATINIB [Suspect]
     Active Substance: LAPATINIB
     Indication: BREAST CANCER
     Route: 048
     Dates: start: 20210512
  12. OMEGA 3 500 [Concomitant]
  13. VALSARTAN. [Concomitant]
     Active Substance: VALSARTAN
  14. CYCLOBENZAPRINE. [Concomitant]
     Active Substance: CYCLOBENZAPRINE
  15. PROCHLORPERAZINE MALEATE. [Concomitant]
     Active Substance: PROCHLORPERAZINE MALEATE
  16. ATORVASTATIN [Concomitant]
     Active Substance: ATORVASTATIN

REACTIONS (1)
  - Abdominal discomfort [None]

NARRATIVE: CASE EVENT DATE: 20210527
